FAERS Safety Report 12981733 (Version 2)
Quarter: 2017Q1

REPORT INFORMATION
  Report Type: Report from Study
  Country: DE (occurrence: DE)
  Receive Date: 20161129
  Receipt Date: 20170130
  Transmission Date: 20170428
  Serious: Yes (Hospitalization, Other)
  Sender: FDA-Public Use
  Company Number: DE-BIOGEN-2016BI00322334

PATIENT
  Age: 50 Year
  Sex: Female
  Weight: 63 kg

DRUGS (9)
  1. XARELTO [Concomitant]
     Active Substance: RIVAROXABAN
     Route: 065
     Dates: start: 20161121
  2. TECFIDERA [Suspect]
     Active Substance: DIMETHYL FUMARATE
     Dosage: MAINTENANCE DOSE
     Route: 048
     Dates: start: 20140702, end: 201607
  3. TECFIDERA [Suspect]
     Active Substance: DIMETHYL FUMARATE
     Indication: MULTIPLE SCLEROSIS
     Route: 048
     Dates: start: 20140701, end: 201607
  4. METFORMIN [Concomitant]
     Active Substance: METFORMIN HYDROCHLORIDE
     Indication: PRODUCT USED FOR UNKNOWN INDICATION
     Route: 065
  5. METROPROLOL SUCCINATE [Concomitant]
     Indication: PRODUCT USED FOR UNKNOWN INDICATION
     Route: 065
     Dates: start: 20161121
  6. ASA [Concomitant]
     Active Substance: ASPIRIN
     Route: 065
     Dates: start: 20161121
  7. ASA [Concomitant]
     Active Substance: ASPIRIN
     Indication: PRODUCT USED FOR UNKNOWN INDICATION
     Route: 065
     Dates: end: 20161111
  8. XARELTO [Concomitant]
     Active Substance: RIVAROXABAN
     Indication: PRODUCT USED FOR UNKNOWN INDICATION
     Route: 065
     Dates: end: 20161111
  9. TECFIDERA [Suspect]
     Active Substance: DIMETHYL FUMARATE
     Dosage: INITIAL DOSE
     Route: 048
     Dates: start: 20140618, end: 20140701

REACTIONS (10)
  - Intracardiac thrombus [Recovered/Resolved]
  - Paresis [Unknown]
  - Post procedural sepsis [Recovered/Resolved]
  - Heparin-induced thrombocytopenia [Not Recovered/Not Resolved]
  - Ischaemic cardiomyopathy [Unknown]
  - Post procedural myocardial infarction [Not Recovered/Not Resolved]
  - Cardiogenic shock [Recovered/Resolved]
  - Post procedural pneumonia [Recovered/Resolved]
  - Cholecystitis [Recovered/Resolved]
  - Coronary artery occlusion [Recovered/Resolved]

NARRATIVE: CASE EVENT DATE: 20160724
